FAERS Safety Report 5679861-4 (Version None)
Quarter: 2008Q1

REPORT INFORMATION
  Report Type: 
  Country: None (occurrence: None)
  Receive Date: 20080324
  Receipt Date: 20080310
  Transmission Date: 20080703
  Serious: Yes (Hospitalization)
  Sender: FDA-Public Use
  Company Number: B0512598A

PATIENT
  Age: 40 Year
  Sex: Male

DRUGS (7)
  1. ZIDOVUDINE [Suspect]
     Indication: ANTIRETROVIRAL THERAPY
  2. LAMIVUDINE [Suspect]
     Indication: ANTIRETROVIRAL THERAPY
  3. LOPINAVIR AND RITONAVIR [Suspect]
     Indication: ANTIRETROVIRAL THERAPY
  4. CO-TRIMOXAZOLE [Concomitant]
  5. CIPROFLOXACIN [Concomitant]
  6. AMOX. TRIHYD+POT. CLAVULAN. [Concomitant]
  7. METRONIDAZOLE HCL [Concomitant]

REACTIONS (7)
  - ANAEMIA [None]
  - COLITIS ULCERATIVE [None]
  - CONDITION AGGRAVATED [None]
  - IMMUNE RECONSTITUTION SYNDROME [None]
  - LARGE INTESTINE PERFORATION [None]
  - NEUTROPENIA [None]
  - PNEUMOPERITONEUM [None]
